FAERS Safety Report 18717157 (Version 1)
Quarter: 2021Q1

REPORT INFORMATION
  Report Type: Report from Study
  Country: CA (occurrence: CA)
  Receive Date: 20210108
  Receipt Date: 20210108
  Transmission Date: 20210419
  Serious: Yes (Other)
  Sender: FDA-Public Use
  Company Number: CA-PFIZER INC-2021005697

PATIENT
  Age: 46 Year
  Sex: Female

DRUGS (17)
  1. METHOTREXATE SODIUM. [Suspect]
     Active Substance: METHOTREXATE SODIUM
     Indication: VOMITING
     Dosage: UNK, WEEKLY (1 EVERY 1 WEEKS)
     Route: 065
  2. METHOTREXATE SODIUM. [Suspect]
     Active Substance: METHOTREXATE SODIUM
     Indication: NAUSEA
  3. DICLOFENAC [Concomitant]
     Active Substance: DICLOFENAC
     Dosage: 2 MG, 1X/DAY
     Route: 065
  4. HYDROMORPHONE HYDROCHLORIDE. [Concomitant]
     Active Substance: HYDROMORPHONE HYDROCHLORIDE
     Dosage: 25 MG, 1X/DAY
     Route: 065
  5. HYDROMORPHONE HYDROCHLORIDE. [Concomitant]
     Active Substance: HYDROMORPHONE HYDROCHLORIDE
     Dosage: 4 MG
     Route: 065
  6. METHOTREXATE SODIUM. [Suspect]
     Active Substance: METHOTREXATE SODIUM
     Indication: DIARRHOEA
  7. METHOTREXATE SODIUM. [Suspect]
     Active Substance: METHOTREXATE SODIUM
     Indication: DIARRHOEA
  8. COSENTYX [Suspect]
     Active Substance: SECUKINUMAB
     Dosage: 300 MG, MONTHLY
     Route: 058
  9. GRAVOL [Concomitant]
     Active Substance: DIMENHYDRINATE
     Route: 065
  10. MORPHINE [Concomitant]
     Active Substance: MORPHINE
     Route: 065
  11. METHOTREXATE SODIUM. [Suspect]
     Active Substance: METHOTREXATE SODIUM
     Indication: NAUSEA
  12. COSENTYX [Suspect]
     Active Substance: SECUKINUMAB
     Indication: ANKYLOSING SPONDYLITIS
     Dosage: 150 MG, MONTHLY
     Route: 058
  13. REMICADE [Concomitant]
     Active Substance: INFLIXIMAB
     Route: 065
  14. METHOTREXATE SODIUM. [Suspect]
     Active Substance: METHOTREXATE SODIUM
     Indication: VOMITING
     Dosage: UNK
  15. HYDROMORPH CONTIN [Concomitant]
     Active Substance: HYDROMORPHONE
     Dosage: 25 MG
     Route: 065
  16. ENBREL [Concomitant]
     Active Substance: ETANERCEPT
     Route: 065
  17. PLAQUENIL [Concomitant]
     Active Substance: HYDROXYCHLOROQUINE SULFATE
     Indication: ANKYLOSING SPONDYLITIS
     Route: 048

REACTIONS (16)
  - Back pain [Unknown]
  - Fatigue [Unknown]
  - Headache [Unknown]
  - Joint range of motion decreased [Unknown]
  - Pericarditis [Unknown]
  - Neck pain [Unknown]
  - Haemorrhage [Unknown]
  - Fibromyalgia [Unknown]
  - Swelling [Unknown]
  - Injury [Unknown]
  - Joint swelling [Unknown]
  - Discomfort [Unknown]
  - Musculoskeletal stiffness [Unknown]
  - Peripheral swelling [Unknown]
  - Arthralgia [Unknown]
  - Pollakiuria [Unknown]
